FAERS Safety Report 8391640-6 (Version None)
Quarter: 2012Q2

REPORT INFORMATION
  Report Type: 
  Country: None (occurrence: None)
  Receive Date: 20120529
  Receipt Date: 20120517
  Transmission Date: 20120825
  Serious: Yes (Other)
  Sender: FDA-Public Use
  Company Number: CA-SANOFI-AVENTIS-2012SA035624

PATIENT
  Age: 65 Year
  Sex: Female

DRUGS (16)
  1. FLUOROURACIL [Concomitant]
  2. CALCIUM [Concomitant]
  3. TRASTUZUMAB [Suspect]
     Indication: BREAST CANCER
     Dosage: CYCLES: 1-14
     Route: 065
  4. ACETAMINOPHEN [Concomitant]
  5. DEXAMETHASONE [Suspect]
     Indication: BREAST CANCER
     Route: 065
  6. CYCLOPHOSPHAMIDE [Concomitant]
  7. TRASTUZUMAB [Suspect]
     Dosage: CYCLES: 14-18
     Route: 065
  8. GRANISETRON [Concomitant]
  9. TYLENOL [Concomitant]
  10. NEULASTA [Concomitant]
  11. RISEDRONATE SODIUM [Concomitant]
     Route: 048
  12. EPIRUBICIN [Concomitant]
  13. LEVOTHYROXINE SODIUM [Concomitant]
     Indication: HYPOTHYROIDISM
     Route: 048
  14. DOCETAXEL [Suspect]
     Indication: BREAST CANCER
     Route: 065
  15. VITAMIN D [Concomitant]
  16. METFORMIN HCL [Concomitant]

REACTIONS (3)
  - HYPERGLYCAEMIA [None]
  - INFUSION RELATED REACTION [None]
  - EJECTION FRACTION DECREASED [None]
